FAERS Safety Report 22966372 (Version 4)
Quarter: 2023Q4

REPORT INFORMATION
  Report Type: Spontaneous
  Country: US (occurrence: US)
  Receive Date: 20230921
  Receipt Date: 20231221
  Transmission Date: 20240110
  Serious: Yes (Hospitalization, Other)
  Sender: FDA-Public Use
  Company Number: US-BRISTOL-MYERS SQUIBB COMPANY-2023-132777

PATIENT
  Age: 56 Year
  Sex: Female

DRUGS (1)
  1. ORENCIA [Suspect]
     Active Substance: ABATACEPT
     Indication: Rheumatoid arthritis
     Route: 058
     Dates: start: 202303

REACTIONS (6)
  - Nephrolithiasis [Unknown]
  - Joint swelling [Unknown]
  - Arthralgia [Unknown]
  - Dizziness [Unknown]
  - Pyrexia [Recovering/Resolving]
  - Cough [Unknown]
